FAERS Safety Report 7239335-6 (Version None)
Quarter: 2011Q1

REPORT INFORMATION
  Report Type: 
  Country: None (occurrence: None)
  Receive Date: 20110121
  Receipt Date: 20110114
  Transmission Date: 20110831
  Serious: Yes (Hospitalization, Other)
  Sender: FDA-Public Use
  Company Number: JP-PFIZER INC-2010168617

PATIENT
  Age: 84 Year
  Sex: Male
  Weight: 50 kg

DRUGS (18)
  1. LYRICA [Suspect]
     Dosage: 75 MG, 6X/DAY
     Route: 048
     Dates: start: 20100922, end: 20101007
  2. THEO-DUR [Concomitant]
     Indication: BRONCHITIS CHRONIC
     Dosage: 100 MG, 2X/DAY
     Route: 048
     Dates: end: 20101129
  3. CLARITH [Concomitant]
     Indication: BRONCHITIS CHRONIC
     Dosage: 200 MG, 1X/DAY
     Route: 048
     Dates: end: 20101129
  4. KAKKON-TO [Concomitant]
     Dosage: 2.5 G, AS NEEDED
  5. ITOROL [Concomitant]
     Dosage: 20 MG, 2X/DAY
  6. PRONON [Concomitant]
     Dosage: 100 MG, 3X/DAY
  7. LYRICA [Suspect]
     Dosage: 75 MG, 1X/DAY
     Route: 048
     Dates: start: 20100722, end: 20100729
  8. LYRICA [Suspect]
     Dosage: 75 MG, 4X/DAY
     Route: 048
     Dates: start: 20100811, end: 20100921
  9. ARICEPT [Concomitant]
     Dosage: 5 MG, 1X/DAY
  10. EPADEL [Concomitant]
     Dosage: 900 MG, 2X/DAY
  11. LYRICA [Suspect]
     Dosage: 75 MG, 8X/DAY
     Route: 048
     Dates: start: 20101008, end: 20101129
  12. MUCODYNE [Concomitant]
     Indication: BRONCHITIS CHRONIC
     Dosage: 250 MG, 2X/DAY
     Route: 048
     Dates: end: 20101129
  13. ASPIRIN [Concomitant]
     Dosage: UNK
     Route: 048
  14. DIGOXIN [Concomitant]
     Dosage: 0.125 MG, 1X/DAY
     Dates: end: 20101130
  15. DIGITALIS [Concomitant]
     Dosage: UNK
     Route: 048
     Dates: end: 20101129
  16. CRESTOR [Concomitant]
     Dosage: 2.5 MG, 1X/DAY
  17. LYRICA [Suspect]
     Dosage: 75 MG, 2X/DAY
     Route: 048
     Dates: start: 20100730, end: 20100810
  18. GASTER [Concomitant]
     Dosage: 20 MG, 2X/DAY
     Dates: end: 20101203

REACTIONS (5)
  - DYSARTHRIA [None]
  - HYPOTENSION [None]
  - ALTERED STATE OF CONSCIOUSNESS [None]
  - SUBDURAL HAEMATOMA [None]
  - SALIVARY HYPERSECRETION [None]
